FAERS Safety Report 11648721 (Version 2)
Quarter: 2015Q4

REPORT INFORMATION
  Report Type: Spontaneous
  Country: US (occurrence: US)
  Receive Date: 20151021
  Receipt Date: 20151022
  Transmission Date: 20160304
  Serious: Yes (Hospitalization, Other)
  Sender: FDA-Public Use
  Company Number: US-JNJFOC-20151005940

PATIENT
  Sex: Female

DRUGS (16)
  1. TYLENOL EXTRA STRENGTH [Suspect]
     Active Substance: ACETAMINOPHEN
     Indication: PAIN
     Route: 065
  2. KLONOPIN [Concomitant]
     Active Substance: CLONAZEPAM
     Indication: DIZZINESS
     Route: 048
  3. KLONOPIN [Concomitant]
     Active Substance: CLONAZEPAM
     Indication: ANXIETY
     Route: 048
  4. POTASSIUM [Concomitant]
     Active Substance: POTASSIUM
     Indication: PRODUCT USED FOR UNKNOWN INDICATION
     Route: 065
  5. XANAX [Concomitant]
     Active Substance: ALPRAZOLAM
     Indication: ANXIETY
     Dosage: ? OR 0.5MG AT BEDTIME, 9 YEARS
     Route: 065
  6. VICODIN [Concomitant]
     Active Substance: ACETAMINOPHEN\HYDROCODONE BITARTRATE
     Indication: PRODUCT USED FOR UNKNOWN INDICATION
     Route: 065
  7. XANAX [Concomitant]
     Active Substance: ALPRAZOLAM
     Indication: ANXIETY
     Dosage: STRENGTH: 1 MG, 2.5 - 3 TABLETS, LAST FEW YEARS
     Route: 065
     Dates: end: 20150629
  8. XANAX [Concomitant]
     Active Substance: ALPRAZOLAM
     Indication: BALANCE DISORDER
     Dosage: STRENGTH: 1 MG, 2.5 - 3 TABLETS, LAST FEW YEARS
     Route: 065
     Dates: end: 20150629
  9. SODIUM CHLORIDE. [Concomitant]
     Active Substance: SODIUM CHLORIDE
     Indication: PRODUCT USED FOR UNKNOWN INDICATION
     Route: 065
  10. XANAX [Concomitant]
     Active Substance: ALPRAZOLAM
     Indication: ANXIETY
     Dosage: PATIENT HAD BEEN TAKING IT FOR PAST 30 YEARS.
     Route: 065
     Dates: start: 1980
  11. DEPAKOTE [Concomitant]
     Active Substance: DIVALPROEX SODIUM
     Indication: PSYCHOTIC DISORDER
     Route: 065
  12. XANAX [Concomitant]
     Active Substance: ALPRAZOLAM
     Indication: ANXIETY
     Route: 065
     Dates: start: 201507
  13. HALDOL [Concomitant]
     Active Substance: HALOPERIDOL
     Indication: PRODUCT USED FOR UNKNOWN INDICATION
     Route: 065
  14. XANAX [Concomitant]
     Active Substance: ALPRAZOLAM
     Indication: BALANCE DISORDER
     Dosage: PATIENT HAD BEEN TAKING IT FOR PAST 30 YEARS.
     Route: 065
     Dates: start: 1980
  15. XANAX [Concomitant]
     Active Substance: ALPRAZOLAM
     Indication: BALANCE DISORDER
     Route: 065
     Dates: start: 201507
  16. XANAX [Concomitant]
     Active Substance: ALPRAZOLAM
     Indication: BALANCE DISORDER
     Dosage: ? OR 0.5MG AT BEDTIME, 9 YEARS
     Route: 065

REACTIONS (2)
  - Drug ineffective [Unknown]
  - Liver injury [Unknown]
